FAERS Safety Report 14288405 (Version 3)
Quarter: 2017Q4

REPORT INFORMATION
  Report Type: Spontaneous
  Country: DE (occurrence: DE)
  Receive Date: 20171214
  Receipt Date: 20171222
  Transmission Date: 20180321
  Serious: Yes (Other)
  Sender: FDA-Public Use
  Company Number: DE-ABBVIE-17K-062-2194002-00

PATIENT
  Age: 25 Year
  Sex: Male
  Weight: 65 kg

DRUGS (1)
  1. HUMIRA [Suspect]
     Active Substance: ADALIMUMAB
     Indication: CROHN^S DISEASE
     Route: 058
     Dates: start: 201312, end: 201712

REACTIONS (3)
  - Rash papular [Unknown]
  - Lymphomatoid papulosis [Not Recovered/Not Resolved]
  - T-cell lymphoma [Unknown]

NARRATIVE: CASE EVENT DATE: 2017
